FAERS Safety Report 9147422 (Version 1)
Quarter: 2013Q1

REPORT INFORMATION
  Report Type: Report from Study
  Country: US (occurrence: US)
  Receive Date: 20130307
  Receipt Date: 20130307
  Transmission Date: 20140127
  Serious: Yes (Hospitalization, Other)
  Sender: FDA-Public Use
  Company Number: US-ABBOTT-13P-163-1056770-00

PATIENT
  Sex: Male
  Weight: 34.1 kg

DRUGS (4)
  1. HUMIRA [Suspect]
     Indication: COLITIS ULCERATIVE
     Route: 058
     Dates: start: 201208, end: 20130125
  2. CHEWABLE VITAMIN [Concomitant]
     Indication: VITAMIN SUPPLEMENTATION
  3. PENTASA [Concomitant]
     Indication: COLITIS ULCERATIVE
     Dates: end: 201301
  4. AZATHIOPRINE [Concomitant]
     Indication: COLITIS ULCERATIVE
     Dates: end: 201301

REACTIONS (3)
  - Gastrointestinal inflammation [Recovered/Resolved]
  - Hypophagia [Recovered/Resolved]
  - Weight decreased [Recovering/Resolving]
